FAERS Safety Report 8844787 (Version 1)
Quarter: 2012Q4

REPORT INFORMATION
  Report Type: 
  Country: TR (occurrence: TR)
  Receive Date: 20121017
  Receipt Date: 20121017
  Transmission Date: 20130627
  Serious: Yes (Hospitalization, Other)
  Sender: FDA-Public Use
  Company Number: TR-UCBSA-068847

PATIENT
  Age: 70 Year
  Sex: Female

DRUGS (2)
  1. LEVETIRACETAM [Suspect]
     Indication: CONVULSION
  2. ACETYLSALICYLATE [Concomitant]
     Dosage: DAILY DOSE: 300 MG

REACTIONS (1)
  - Pemphigoid [Recovered/Resolved]
